FAERS Safety Report 23567910 (Version 1)
Quarter: 2024Q1

REPORT INFORMATION
  Report Type: Spontaneous
  Country: US (occurrence: US)
  Receive Date: 20240226
  Receipt Date: 20240226
  Transmission Date: 20240410
  Serious: No
  Sender: FDA-Public Use
  Company Number: US-SANOFI-01949041

PATIENT
  Age: 21 Year
  Sex: Male

DRUGS (2)
  1. XENPOZYME [Suspect]
     Active Substance: OLIPUDASE ALFA-RPCP
     Indication: Niemann-Pick disease
     Dosage: 2 MG/KG, QOW
     Dates: start: 202308
  2. XENPOZYME [Suspect]
     Active Substance: OLIPUDASE ALFA-RPCP
     Dosage: 1 MG/KG
     Route: 065

REACTIONS (2)
  - Hepatic enzyme increased [Unknown]
  - Product preparation error [Unknown]

NARRATIVE: CASE EVENT DATE: 20240216
